FAERS Safety Report 21878150 (Version 4)
Quarter: 2023Q1

REPORT INFORMATION
  Report Type: Report from Study
  Country: GR (occurrence: GR)
  Receive Date: 20230118
  Receipt Date: 20230125
  Transmission Date: 20230418
  Serious: Yes (Hospitalization)
  Sender: FDA-Public Use
  Company Number: GR-AMGEN-GRCCT2023004769

PATIENT
  Age: 51 Year
  Sex: Female
  Weight: 77 kg

DRUGS (6)
  1. ROMIPLOSTIM [Suspect]
     Active Substance: ROMIPLOSTIM
     Indication: Thrombocytopenia
     Dosage: UNK
     Route: 058
     Dates: start: 20221110
  2. BEVACIZUMAB [Concomitant]
     Active Substance: BEVACIZUMAB
     Dosage: 1080 MILLIGRAM
     Dates: start: 20221228, end: 20221228
  3. CARBOPLATIN [Concomitant]
     Active Substance: CARBOPLATIN
     Dosage: 500 MILLIGRAM
     Dates: start: 20221228, end: 20221228
  4. ERYTHROPOIETIN [Concomitant]
     Active Substance: ERYTHROPOIETIN
     Dosage: 40 UNK
     Route: 058
     Dates: start: 20221010
  5. ACETAMINOPHEN [Concomitant]
     Active Substance: ACETAMINOPHEN
     Dosage: 1000 MILLIGRAM
     Route: 048
     Dates: start: 20220824
  6. GEMCITABINE [Concomitant]
     Active Substance: GEMCITABINE
     Dosage: 1400 MILLIGRAM
     Dates: start: 20221214, end: 20230104

REACTIONS (2)
  - Petechiae [Recovered/Resolved]
  - Thrombocytopenia [Recovered/Resolved]

NARRATIVE: CASE EVENT DATE: 20230111
